FAERS Safety Report 21635038 (Version 6)
Quarter: 2023Q2

REPORT INFORMATION
  Report Type: Spontaneous
  Country: JP (occurrence: JP)
  Receive Date: 20221123
  Receipt Date: 20230517
  Transmission Date: 20230722
  Serious: Yes (Death, Other)
  Sender: FDA-Public Use
  Company Number: JP-JAZZ-2022-JP-035993

PATIENT
  Age: 69 Year
  Sex: Female
  Weight: 55 kg

DRUGS (5)
  1. DEFITELIO [Suspect]
     Active Substance: DEFIBROTIDE SODIUM
     Indication: Venoocclusive liver disease
     Dosage: 25 MILLIGRAM/KILOGRAM
     Route: 042
     Dates: start: 20221112, end: 20221118
  2. DEFITELIO [Suspect]
     Active Substance: DEFIBROTIDE SODIUM
     Dosage: UNK
     Route: 042
     Dates: end: 20230106
  3. DEFITELIO [Suspect]
     Active Substance: DEFIBROTIDE SODIUM
     Dosage: 6.25 MILLIGRAM/KILOGRAM
     Route: 042
     Dates: start: 20221118
  4. DEFITELIO [Suspect]
     Active Substance: DEFIBROTIDE SODIUM
     Dosage: 25 MILLIGRAM/KILOGRAM
     Route: 042
     Dates: start: 20221119
  5. SAMSCA [Concomitant]
     Active Substance: TOLVAPTAN
     Indication: Product used for unknown indication
     Dosage: UNK

REACTIONS (5)
  - Lymphoma [Fatal]
  - Renal impairment [Unknown]
  - Lower gastrointestinal haemorrhage [Recovered/Resolved]
  - Thrombocytopenia [Unknown]
  - Acute graft versus host disease [Not Recovered/Not Resolved]

NARRATIVE: CASE EVENT DATE: 20221101
